FAERS Safety Report 5108293-2 (Version None)
Quarter: 2006Q3

REPORT INFORMATION
  Report Type: 
  Country: None (occurrence: None)
  Receive Date: 20060914
  Receipt Date: 20060914
  Transmission Date: 20061208
  Serious: Yes (Hospitalization, Disabling)
  Sender: FDA-Public Use
  Company Number: None

PATIENT
  Age: 52 Year
  Sex: Male
  Weight: 76.2043 kg

DRUGS (5)
  1. OMNIPAQUE 140 [Suspect]
     Indication: SPINAL MYELOGRAM
     Dosage: 180 ONCE SPINAL COR
     Dates: start: 20050216
  2. OXYCONTIN [Concomitant]
  3. NEURONTIN [Concomitant]
  4. AMBIEN [Concomitant]
  5. WELLBUTRIN [Concomitant]

REACTIONS (9)
  - ASTHENIA [None]
  - DECREASED ACTIVITY [None]
  - DEPRESSION [None]
  - DIPLOPIA [None]
  - HEADACHE [None]
  - HYPOAESTHESIA [None]
  - LOSS OF CONSCIOUSNESS [None]
  - MUSCULOSKELETAL STIFFNESS [None]
  - POST PROCEDURAL COMPLICATION [None]
